FAERS Safety Report 4459373-6 (Version None)
Quarter: 2004Q3

REPORT INFORMATION
  Report Type: 
  Country: None (occurrence: None)
  Receive Date: 20040927
  Receipt Date: 20040917
  Transmission Date: 20050211
  Serious: Yes (Other)
  Sender: FDA-Public Use
  Company Number: US-ROCHE-380797

PATIENT
  Sex: Male

DRUGS (5)
  1. KLONOPIN [Suspect]
     Indication: ANXIETY
     Route: 048
     Dates: start: 19960615
  2. PROVIGIL [Suspect]
     Indication: HYPOMETABOLISM
     Route: 048
     Dates: start: 20040713
  3. ZYPREXA [Interacting]
     Indication: SCHIZOPHRENIA
     Route: 048
     Dates: start: 19980615
  4. PAXIL [Interacting]
     Indication: DEPRESSION
     Route: 048
     Dates: start: 19990615
  5. TOBRAMAXIN [Interacting]
     Indication: DRUG USE FOR UNKNOWN INDICATION
     Route: 048
     Dates: start: 20010615

REACTIONS (2)
  - DRUG INTERACTION [None]
  - PARANOIA [None]
